FAERS Safety Report 8484803-2 (Version None)
Quarter: 2012Q3

REPORT INFORMATION
  Report Type: 
  Country: None (occurrence: None)
  Receive Date: 20120703
  Receipt Date: 20120625
  Transmission Date: 20120928
  Serious: Yes (Hospitalization)
  Sender: FDA-Public Use
  Company Number: US-BAYER-2011-047130

PATIENT
  Sex: Female
  Weight: 128 kg

DRUGS (10)
  1. MORPHINE [Concomitant]
     Indication: PAIN
     Dosage: 15 MG, UNK
     Route: 030
     Dates: start: 20080204, end: 20080401
  2. ACETAMINOPHEN [Concomitant]
     Indication: PAIN
     Dosage: 1000 MG, UNK
     Route: 048
  3. TERBUTALINE [Concomitant]
     Dosage: 0.25 MG, UNK
     Route: 058
     Dates: start: 20080307, end: 20080311
  4. VISTARIL [Concomitant]
     Indication: PAIN
     Dosage: 25 MG, UNK
     Route: 030
     Dates: start: 20080204, end: 20080401
  5. YAZ [Suspect]
     Indication: CONTRACEPTION
     Dosage: UNK
     Route: 048
     Dates: start: 20080401, end: 20080528
  6. PERCOCET [Concomitant]
     Indication: PAIN
     Dosage: UNK
     Route: 048
     Dates: start: 20080408
  7. OXYCODONE HCL [Concomitant]
     Indication: PAIN
     Dosage: 15 MG, UNK
     Route: 048
     Dates: start: 20080408, end: 20080409
  8. KEFZOL [Concomitant]
     Dosage: 2 G, UNK
     Dates: start: 20080408, end: 20080409
  9. MULTI-VITAMINS [Concomitant]
     Indication: PREGNANCY
     Dosage: UNK UNK, QD
     Route: 048
  10. ANCEF [Concomitant]
     Dosage: 2 G, UNK
     Dates: start: 20080307

REACTIONS (7)
  - MENTAL DISORDER [None]
  - CHOLECYSTITIS CHRONIC [None]
  - CHOLECYSTITIS ACUTE [None]
  - EMOTIONAL DISTRESS [None]
  - CHOLELITHIASIS [None]
  - INJURY [None]
  - ANXIETY [None]
